FAERS Safety Report 9887445 (Version 1)
Quarter: 2014Q1

REPORT INFORMATION
  Report Type: Spontaneous
  Country: FR (occurrence: None)
  Receive Date: 20140206
  Receipt Date: 20140206
  Transmission Date: 20141002
  Serious: Yes (Hospitalization)
  Sender: FDA-Public Use
  Company Number: 2159045

PATIENT
  Age: 57 Year
  Sex: Male

DRUGS (2)
  1. GEMCITABINE HYDROCHLORIDE [Suspect]
     Indication: CHEMOTHERAPY
     Dosage: 2500 MG MILLIGRAMS, 1 CYCLICAL, INTRAVENOUS
     Route: 042
     Dates: start: 20131204
  2. CARBOPLATIN [Suspect]
     Indication: CHEMOTHERAPY
     Route: 042
     Dates: start: 20131127, end: 20131127

REACTIONS (5)
  - Melaena [None]
  - Haematemesis [None]
  - Thrombocytopenia [None]
  - Anaemia [None]
  - Febrile neutropenia [None]
